FAERS Safety Report 5601012-2 (Version None)
Quarter: 2008Q1

REPORT INFORMATION
  Report Type: 
  Country: None (occurrence: None)
  Receive Date: 20080122
  Receipt Date: 20080104
  Transmission Date: 20080703
  Serious: Yes (Death)
  Sender: FDA-Public Use
  Company Number: 2008000939

PATIENT
  Age: 65 Year
  Sex: Male

DRUGS (2)
  1. ETHANOL (ETHANOL) [Suspect]
     Dosage: ORAL
     Route: 048
  2. ISOPROPANOL (ISOPROPANOL) [Suspect]
     Dosage: ORAL
     Route: 048

REACTIONS (2)
  - DRUG ABUSE [None]
  - DRUG TOXICITY [None]
